FAERS Safety Report 9421152 (Version 2)
Quarter: 2013Q3

REPORT INFORMATION
  Report Type: Spontaneous
  Country: DE (occurrence: None)
  Receive Date: 20130715
  Receipt Date: 20130820
  Transmission Date: 20140515
  Serious: Yes (Death)
  Sender: FDA-Public Use
  Company Number: 2013036846

PATIENT
  Age: 61 Year
  Sex: Male

DRUGS (1)
  1. PRIVIGEN [Suspect]
     Indication: PLASMA CELL MYELOMA
     Dosage: 10 G, 100 MG/ML INFUSION SOLUTION (10%)
     Route: 042
     Dates: start: 20111129

REACTIONS (1)
  - Chills [None]
